FAERS Safety Report 7040588-8 (Version None)
Quarter: 2010Q4

REPORT INFORMATION
  Report Type: 
  Country: None (occurrence: None)
  Receive Date: 20101006
  Receipt Date: 20100920
  Transmission Date: 20110411
  Serious: Yes (Disabling, Other)
  Sender: FDA-Public Use
  Company Number: ACO_02297_2010

PATIENT
  Age: 47 Year
  Sex: Female
  Weight: 86.1834 kg

DRUGS (4)
  1. AMPYRA [Suspect]
     Indication: GAIT DISTURBANCE
     Dosage: (10 MG BID ORAL) (10 MG BID ORAL)
     Route: 048
     Dates: start: 20100701
  2. AMPYRA [Suspect]
     Indication: GAIT DISTURBANCE
     Dosage: (10 MG BID ORAL) (10 MG BID ORAL)
     Route: 048
     Dates: start: 20100908
  3. VIRAMUNE [Concomitant]
  4. COMBIVIR [Concomitant]

REACTIONS (5)
  - ECONOMIC PROBLEM [None]
  - FALL [None]
  - HYPOPHAGIA [None]
  - MULTIPLE SCLEROSIS RELAPSE [None]
  - WEIGHT DECREASED [None]
